FAERS Safety Report 5010519-0 (Version None)
Quarter: 2006Q2

REPORT INFORMATION
  Report Type: 
  Country: None (occurrence: None)
  Receive Date: 20060525
  Receipt Date: 20060224
  Transmission Date: 20061013
  Serious: No
  Sender: FDA-Public Use
  Company Number: US-GLAXOSMITHKLINE-A0595130A

PATIENT
  Age: 57 Year
  Sex: Male

DRUGS (1)
  1. BACTROBAN [Suspect]
     Indication: DRUG USE FOR UNKNOWN INDICATION
     Route: 045
     Dates: start: 20051101

REACTIONS (2)
  - NASAL DRYNESS [None]
  - SCAB [None]
